FAERS Safety Report 13482583 (Version 2)
Quarter: 2017Q2

REPORT INFORMATION
  Report Type: Spontaneous
  Country: US (occurrence: US)
  Receive Date: 20170426
  Receipt Date: 20170606
  Transmission Date: 20170830
  Serious: Yes (Congenital Anomaly, Other)
  Sender: FDA-Public Use
  Company Number: US-ROCHE-1923100

PATIENT
  Sex: Male

DRUGS (6)
  1. HYDROXYCHLOROQUINE [Concomitant]
     Active Substance: HYDROXYCHLOROQUINE
     Route: 064
  2. ASPIRIN. [Concomitant]
     Active Substance: ASPIRIN
     Route: 064
  3. MYCOPHENOLATE MOFETIL. [Suspect]
     Active Substance: MYCOPHENOLATE MOFETIL
     Indication: PRODUCT USED FOR UNKNOWN INDICATION
     Route: 064
  4. LOW MOLECULAR WEIGHT HEPARIN [Concomitant]
     Active Substance: UNSPECIFIED INGREDIENT
     Route: 064
  5. MYCOPHENOLATE MOFETIL. [Suspect]
     Active Substance: MYCOPHENOLATE MOFETIL
     Route: 064
  6. PREDNISONE. [Concomitant]
     Active Substance: PREDNISONE
     Route: 064

REACTIONS (10)
  - Right ventricular hypertrophy [Unknown]
  - Premature baby [Unknown]
  - Low birth weight baby [Unknown]
  - Patent ductus arteriosus [Recovering/Resolving]
  - Tricuspid valve incompetence [Unknown]
  - Atrial septal defect [Unknown]
  - Vasodilatation [Recovering/Resolving]
  - Foetal exposure during pregnancy [Unknown]
  - Anomalous pulmonary venous connection [Recovering/Resolving]
  - Intraventricular haemorrhage [Recovered/Resolved]
